FAERS Safety Report 7988306-0 (Version None)
Quarter: 2011Q4

REPORT INFORMATION
  Report Type: 
  Country: None (occurrence: None)
  Receive Date: 20111216
  Receipt Date: 20111205
  Transmission Date: 20120403
  Serious: Yes (Hospitalization)
  Sender: FDA-Public Use
  Company Number: ES-MUTUAL PHARMACEUTICAL COMPANY, INC.-MTDZ20110004

PATIENT
  Age: 71 Year
  Sex: Male

DRUGS (2)
  1. METRONIDAZOLE [Suspect]
     Indication: PROSTATIC ABSCESS
     Route: 065
  2. METRONIDAZOLE [Suspect]
     Route: 048

REACTIONS (1)
  - HYPOGLYCAEMIA [None]
